FAERS Safety Report 8406436 (Version 5)
Quarter: 2025Q1

REPORT INFORMATION
  Report Type: Spontaneous
  Country: FR (occurrence: FR)
  Receive Date: 20120215
  Receipt Date: 20250129
  Transmission Date: 20250408
  Serious: Yes (Life-Threatening, Hospitalization)
  Sender: MYLAN
  Company Number: FR-PFIZER INC-2012036442

PATIENT
  Age: 80 Year
  Sex: Male
  Weight: 67.9 kg

DRUGS (11)
  1. XANAX [Suspect]
     Active Substance: ALPRAZOLAM
     Indication: Anxiety
     Dosage: 0.25 MG, 1X/DAY
     Route: 048
     Dates: start: 20110928, end: 20111004
  2. ARICEPT [Suspect]
     Active Substance: DONEPEZIL HYDROCHLORIDE
     Indication: Dementia Alzheimer^s type
     Dosage: 10 MG, 1X/DAY REGIMEN DOSE UNIT: MILLIGRAM
     Route: 048
  3. RISPERDAL [Suspect]
     Active Substance: RISPERIDONE
     Indication: Dementia Alzheimer^s type
     Dosage: 0.25 MILLIGRAM, BID, 0.25 MG, 2X/DAY
     Route: 048
     Dates: start: 20110926, end: 20110927
  4. RISPERDAL [Suspect]
     Active Substance: RISPERIDONE
     Dosage: 0.5 MILLIGRAM, BID, 0.5 MG, 2X/DAY
     Route: 048
     Dates: start: 20110928, end: 20111001
  5. RISPERDAL [Suspect]
     Active Substance: RISPERIDONE
     Dosage: 1 MILLIGRAM, BID, 1 MG, 2X/DAY
     Route: 048
     Dates: start: 20111002, end: 20111005
  6. MEMANTINE HYDROCHLORIDE [Suspect]
     Active Substance: MEMANTINE HYDROCHLORIDE
     Indication: Dementia Alzheimer^s type
     Dosage: 20 MILLIGRAM, QD, 20 MG, 1X/DAY
     Route: 048
  7. KARDEGIC [Suspect]
     Active Substance: ASPIRIN DL-LYSINE
     Indication: Product used for unknown indication
     Dosage: 75 MILLIGRAM, QD, 75 MG, 1X/DAY, POWDER FOR ORAL SOLUTION IN DOSE SACHET
     Route: 048
  8. NICORANDIL [Suspect]
     Active Substance: NICORANDIL
     Indication: Product used for unknown indication
     Dosage: 10 MILLIGRAM, QD, 10 MG, 1X/DAY. SCORED TABLET
     Route: 048
  9. PERINDOPRIL [Suspect]
     Active Substance: PERINDOPRIL
     Indication: Product used for unknown indication
     Dosage: 4 MILLIGRAM, QD, 4 MG, 1X/DAY REGIMEN DOSE UNIT: MILLIGRAM
     Route: 048
  10. ESCITALOPRAM OXALATE [Suspect]
     Active Substance: ESCITALOPRAM OXALATE
     Indication: Product used for unknown indication
     Dosage: 10 MILLIGRAM, QD, 10 MG, 1X/DAY, SCORED FILM-COATED TABLET
     Route: 048
     Dates: end: 20111003
  11. LOVENOX [Concomitant]
     Active Substance: ENOXAPARIN SODIUM
     Indication: Thrombosis prophylaxis
     Route: 065
     Dates: start: 20111007

REACTIONS (5)
  - Pulmonary embolism [Recovered/Resolved]
  - Dementia Alzheimer^s type [Unknown]
  - Thrombocytopenia [Unknown]
  - Aggression [Unknown]
  - Anxiety [Unknown]

NARRATIVE: CASE EVENT DATE: 20110926
